FAERS Safety Report 24310745 (Version 2)
Quarter: 2024Q3

REPORT INFORMATION
  Report Type: Report from Study
  Country: US (occurrence: US)
  Receive Date: 20240912
  Receipt Date: 20240916
  Transmission Date: 20241017
  Serious: No
  Sender: AMGEN
  Company Number: US-AMGEN-USASP2024181038

PATIENT
  Age: 79 Year
  Sex: Female

DRUGS (2)
  1. REPATHA [Suspect]
     Active Substance: EVOLOCUMAB
     Indication: Type V hyperlipidaemia
     Dosage: 140 MILLIGRAM, QMO
     Route: 065
  2. REPATHA [Suspect]
     Active Substance: EVOLOCUMAB
     Dosage: UNK, QMO
     Route: 065

REACTIONS (3)
  - Wrong technique in product usage process [Unknown]
  - Drug dose omission by device [Unknown]
  - Off label use [Unknown]

NARRATIVE: CASE EVENT DATE: 20240907
